FAERS Safety Report 6063388-4 (Version None)
Quarter: 2009Q1

REPORT INFORMATION
  Report Type: 
  Country: None (occurrence: None)
  Receive Date: 20090129
  Receipt Date: 20090112
  Transmission Date: 20090719
  Serious: Yes (Other)
  Sender: FDA-Public Use
  Company Number: ACO_00507_2009

PATIENT
  Age: 76 Year
  Sex: Male
  Weight: 86.1834 kg

DRUGS (7)
  1. ZANAFLEX [Suspect]
     Indication: NECK PAIN
     Dosage: 4 MG 6X/DAY ORAL
     Route: 048
     Dates: start: 20081101
  2. COUMADIN [Concomitant]
  3. LIPITOR [Concomitant]
  4. LOPRESSOR [Concomitant]
  5. ASPIRIN [Concomitant]
  6. AVODART [Concomitant]
  7. FLOMAX [Concomitant]

REACTIONS (8)
  - ABNORMAL BEHAVIOUR [None]
  - AGGRESSION [None]
  - AGITATION [None]
  - CONFUSIONAL STATE [None]
  - DRUG DEPENDENCE [None]
  - HALLUCINATION [None]
  - INTENTIONAL DRUG MISUSE [None]
  - THINKING ABNORMAL [None]
